FAERS Safety Report 8618393-8 (Version None)
Quarter: 2012Q3

REPORT INFORMATION
  Report Type: 
  Country: None (occurrence: None)
  Receive Date: 20120824
  Receipt Date: 20120816
  Transmission Date: 20120928
  Serious: No
  Sender: FDA-Public Use
  Company Number: US-BIOGENIDEC-2012BI032695

PATIENT
  Sex: Male

DRUGS (2)
  1. METHENAMINE TAB [Concomitant]
     Indication: PROPHYLAXIS URINARY TRACT INFECTION
     Dates: start: 20120810
  2. TYSABRI [Suspect]
     Indication: MULTIPLE SCLEROSIS
     Route: 042
     Dates: start: 20071003

REACTIONS (18)
  - WEIGHT DECREASED [None]
  - DIZZINESS [None]
  - SOMNOLENCE [None]
  - APHAGIA [None]
  - DYSPHONIA [None]
  - TREMOR [None]
  - CONFUSIONAL AROUSAL [None]
  - MUSCULOSKELETAL STIFFNESS [None]
  - INCREASED UPPER AIRWAY SECRETION [None]
  - CHILLS [None]
  - SPEECH DISORDER [None]
  - HYPOAESTHESIA [None]
  - HYPERHIDROSIS [None]
  - RHINORRHOEA [None]
  - MOBILITY DECREASED [None]
  - MUSCLE TIGHTNESS [None]
  - DRY MOUTH [None]
  - DEPRESSED LEVEL OF CONSCIOUSNESS [None]
